FAERS Safety Report 23934508 (Version 1)
Quarter: 2024Q2

REPORT INFORMATION
  Report Type: Spontaneous
  Country: PT (occurrence: PT)
  Receive Date: 20240603
  Receipt Date: 20240603
  Transmission Date: 20240716
  Serious: Yes (Hospitalization, Other)
  Sender: FDA-Public Use
  Company Number: PT-BEXIMCO-2024BEX00030

PATIENT
  Age: 54 Year
  Sex: Female

DRUGS (6)
  1. METFORMIN HYDROCHLORIDE [Suspect]
     Active Substance: METFORMIN HYDROCHLORIDE
     Dosage: 50 G
  2. ALPRAZOLAM [Suspect]
     Active Substance: ALPRAZOLAM
     Dosage: UNK
  3. VENLAFAXINE [Suspect]
     Active Substance: VENLAFAXINE HYDROCHLORIDE
     Dosage: UNK
  4. PROPRANOLOL [Suspect]
     Active Substance: PROPRANOLOL HYDROCHLORIDE
     Dosage: UNK
  5. LETROZOLE [Suspect]
     Active Substance: LETROZOLE
     Dosage: UNK
  6. VILDAGLIPTIN [Suspect]
     Active Substance: VILDAGLIPTIN
     Dosage: UNK

REACTIONS (6)
  - Coma [Unknown]
  - Bradycardia [Unknown]
  - Electrocardiogram QT prolonged [Unknown]
  - Hypotension [Unknown]
  - Hypoglycaemia [Unknown]
  - Lactic acidosis [Recovering/Resolving]
